FAERS Safety Report 21974150 (Version 6)
Quarter: 2023Q1

REPORT INFORMATION
  Report Type: Spontaneous
  Country: US (occurrence: US)
  Receive Date: 20230209
  Receipt Date: 20230331
  Transmission Date: 20230418
  Serious: No
  Sender: FDA-Public Use
  Company Number: US-Blueprint Medicines Corporation-SP-US-2023-000256

PATIENT
  Age: 65 Year
  Sex: Female

DRUGS (2)
  1. AYVAKIT [Suspect]
     Active Substance: AVAPRITINIB
     Indication: Systemic mastocytosis
     Route: 048
     Dates: start: 20221031
  2. AYVAKIT [Suspect]
     Active Substance: AVAPRITINIB
     Route: 048
     Dates: start: 20230128

REACTIONS (5)
  - Pharyngitis streptococcal [Recovering/Resolving]
  - Hair colour changes [Unknown]
  - Alopecia [Not Recovered/Not Resolved]
  - Pigmentation disorder [Recovering/Resolving]
  - Emergency care [Unknown]
